FAERS Safety Report 24073846 (Version 1)
Quarter: 2024Q3

REPORT INFORMATION
  Report Type: Spontaneous
  Country: JP (occurrence: JP)
  Receive Date: 20240710
  Receipt Date: 20240710
  Transmission Date: 20241017
  Serious: No
  Sender: PIERRE FABRE MEDICAMENT
  Company Number: JP-PFM-2020-21384

PATIENT
  Age: 0 Year
  Sex: Female
  Weight: 4.54 kg

DRUGS (6)
  1. PROPRANOLOL HYDROCHLORIDE [Suspect]
     Active Substance: PROPRANOLOL HYDROCHLORIDE
     Indication: Infantile haemangioma
     Dosage: 0.5 MG/KG/12 HOURS
     Route: 048
     Dates: start: 20201102, end: 20201103
  2. PROPRANOLOL HYDROCHLORIDE [Suspect]
     Active Substance: PROPRANOLOL HYDROCHLORIDE
     Dosage: 1 MG/KG/12 HOURS
     Route: 048
     Dates: start: 20201104, end: 20201105
  3. PROPRANOLOL HYDROCHLORIDE [Suspect]
     Active Substance: PROPRANOLOL HYDROCHLORIDE
     Dosage: 1.5 MG/KG/12 HOURS
     Route: 048
     Dates: start: 20201106, end: 20201118
  4. PROPRANOLOL HYDROCHLORIDE [Suspect]
     Active Substance: PROPRANOLOL HYDROCHLORIDE
     Dosage: 0.5 MG/KG/12 HOURS
     Route: 048
     Dates: start: 20201119, end: 20201119
  5. PROPRANOLOL HYDROCHLORIDE [Suspect]
     Active Substance: PROPRANOLOL HYDROCHLORIDE
     Dosage: 1 MG/KG/DAY
     Route: 048
     Dates: start: 20201120, end: 20201120
  6. PROPRANOLOL HYDROCHLORIDE [Suspect]
     Active Substance: PROPRANOLOL HYDROCHLORIDE
     Dosage: 0.5 MG/KG/12 HOURS
     Route: 048
     Dates: start: 20201121

REACTIONS (5)
  - Wheezing [Recovering/Resolving]
  - Productive cough [Recovered/Resolved]
  - Sputum retention [Recovering/Resolving]
  - Wheezing [Recovering/Resolving]
  - Wheezing [Recovering/Resolving]

NARRATIVE: CASE EVENT DATE: 20201108
